FAERS Safety Report 4795315-1 (Version None)
Quarter: 2005Q4

REPORT INFORMATION
  Report Type: 
  Country: None (occurrence: None)
  Receive Date: 20051012
  Receipt Date: 20050930
  Transmission Date: 20060501
  Serious: Yes (Hospitalization)
  Sender: FDA-Public Use
  Company Number: FR-GLAXOSMITHKLINE-B0395499A

PATIENT
  Age: 35 Year
  Sex: Male

DRUGS (3)
  1. ZIAGEN [Suspect]
     Indication: HIV INFECTION
     Dosage: 2TAB PER DAY
     Route: 048
     Dates: start: 20050902, end: 20050912
  2. EPIVIR [Suspect]
     Indication: HIV INFECTION
     Dosage: 1TAB PER DAY
     Route: 048
     Dates: start: 20050902, end: 20050913
  3. SUSTIVA [Suspect]
     Indication: HIV INFECTION
     Dosage: 1TAB PER DAY
     Route: 048
     Dates: start: 20050902, end: 20050913

REACTIONS (2)
  - PRURITUS [None]
  - RASH [None]
